FAERS Safety Report 19066547 (Version 2)
Quarter: 2022Q2

REPORT INFORMATION
  Report Type: Report from Study
  Country: CA (occurrence: CA)
  Receive Date: 20210328
  Receipt Date: 20220401
  Transmission Date: 20220721
  Serious: Yes (Other)
  Sender: FDA-Public Use
  Company Number: CA-HLS-202107262

PATIENT
  Age: 62 Year
  Sex: Female

DRUGS (2)
  1. CLOZARIL [Suspect]
     Active Substance: CLOZAPINE
     Indication: Product used for unknown indication
     Route: 048
     Dates: start: 19961104
  2. CLOZARIL [Suspect]
     Active Substance: CLOZAPINE
     Indication: Product used for unknown indication
     Route: 048
     Dates: start: 19961104, end: 20210323

REACTIONS (3)
  - Neutropenia [Unknown]
  - Breast cancer [Unknown]
  - Leukopenia [Unknown]

NARRATIVE: CASE EVENT DATE: 20210322
